FAERS Safety Report 6820366-2 (Version None)
Quarter: 2010Q3

REPORT INFORMATION
  Report Type: 
  Country: None (occurrence: None)
  Receive Date: 20100707
  Receipt Date: 20100705
  Transmission Date: 20110219
  Serious: Yes (Death)
  Sender: FDA-Public Use
  Company Number: CHPA2010DE10073

PATIENT
  Sex: Male
  Weight: 65 kg

DRUGS (12)
  1. SCOPOLAMINE [Suspect]
     Indication: PALLIATIVE CARE
     Dosage: UNK,UNK
     Route: 062
     Dates: start: 20100621, end: 20100628
  2. MORPHINE [Concomitant]
     Dosage: UNK,UNK
  3. FENTANYL [Concomitant]
     Dosage: UNK,UNK
  4. TRAMADOL [Concomitant]
     Dosage: UNK,UNK
  5. FLUCONAZOLE [Concomitant]
     Dosage: UNK,UNK
  6. METOPROLOL [Concomitant]
     Dosage: UNK,UNK
  7. METAMIZOLE [Concomitant]
     Dosage: UNK,UNK
  8. AMOXICILINA + CLAVULANICO [Concomitant]
     Dosage: UNK,UNK
  9. LORAZEPAM [Concomitant]
     Dosage: UNK,UNK
  10. MIDAZOLAM HCL [Concomitant]
     Dosage: UNK,UNK
  11. EZETIMIBE W/SIMVASTATIN [Concomitant]
     Dosage: UNK,UNK
  12. TIZANIDINE [Concomitant]
     Dosage: UNK,UNK

REACTIONS (5)
  - CONCOMITANT DISEASE PROGRESSION [None]
  - HYPERHIDROSIS [None]
  - MALIGNANT NEOPLASM PROGRESSION [None]
  - OFF LABEL USE [None]
  - PRODUCT ADHESION ISSUE [None]
